FAERS Safety Report 12269835 (Version 1)
Quarter: 2016Q2

REPORT INFORMATION
  Report Type: Spontaneous
  Country: CA (occurrence: CA)
  Receive Date: 20160415
  Receipt Date: 20160415
  Transmission Date: 20160815
  Serious: Yes (Hospitalization)
  Sender: FDA-Public Use
  Company Number: CA-AMGEN-CANSP2016045648

PATIENT
  Age: 62 Year
  Sex: Female

DRUGS (2)
  1. ZOMETA [Suspect]
     Active Substance: ZOLEDRONIC ACID
     Indication: PLASMA CELL MYELOMA
     Dosage: 4.0 MG, 1 EVERY 1 MONTH(S)
     Route: 042
  2. FILGRASTIM [Suspect]
     Active Substance: FILGRASTIM
     Indication: PRODUCT USED FOR UNKNOWN INDICATION
     Dosage: UNK
     Route: 065

REACTIONS (9)
  - Blood stem cell harvest failure [Recovered/Resolved]
  - Increased appetite [Recovered/Resolved]
  - Pyrexia [Recovered/Resolved]
  - Rash pruritic [Recovered/Resolved]
  - Weight increased [Recovered/Resolved]
  - Rash [Recovered/Resolved]
  - Photopsia [Recovered/Resolved]
  - Influenza [Recovered/Resolved]
  - Rash erythematous [Recovered/Resolved]
